FAERS Safety Report 8296622-0 (Version None)
Quarter: 2012Q2

REPORT INFORMATION
  Report Type: 
  Country: None (occurrence: None)
  Receive Date: 20120418
  Receipt Date: 20120418
  Transmission Date: 20120825
  Serious: Yes (Hospitalization, Disabling)
  Sender: FDA-Public Use
  Company Number: None

PATIENT
  Age: 22 Year
  Sex: Female
  Weight: 60.1 kg

DRUGS (1)
  1. DEPO-MEDROL [Suspect]

REACTIONS (3)
  - ACUTE LUNG INJURY [None]
  - FAT EMBOLISM [None]
  - PLEURAL EFFUSION [None]
